FAERS Safety Report 24285990 (Version 2)
Quarter: 2024Q3

REPORT INFORMATION
  Report Type: Report from Study
  Country: BR (occurrence: BR)
  Receive Date: 20240905
  Receipt Date: 20240906
  Transmission Date: 20241017
  Serious: Yes (Hospitalization)
  Sender: JOHNSON AND JOHNSON
  Company Number: BR-JNJFOC-20240882736

PATIENT
  Age: 12 Year
  Sex: Female
  Weight: 43 kg

DRUGS (2)
  1. REMICADE [Suspect]
     Active Substance: INFLIXIMAB
     Indication: Colitis ulcerative
     Dosage: 17-JUL-2024, CORRESPONDING TO WEEK 0, 31-JUL-2024, CORRESPONDING TO WEEK 2 AND THE NEXT ONE WILL BE
     Route: 041
  2. INFLIXIMAB [Suspect]
     Active Substance: INFLIXIMAB
     Indication: Colitis ulcerative
     Dosage: 17-JUL-2024, CORRESPONDING TO WEEK 0, 31-JUL-2024, CORRESPONDING TO WEEK 2 AND THE NEXT ONE WILL BE
     Route: 041

REACTIONS (1)
  - Colitis ulcerative [Not Recovered/Not Resolved]
